FAERS Safety Report 13862181 (Version 1)
Quarter: 2017Q3

REPORT INFORMATION
  Report Type: Report from Study
  Country: NO (occurrence: NO)
  Receive Date: 20170812
  Receipt Date: 20170812
  Transmission Date: 20171127
  Serious: Yes (Other)
  Sender: FDA-Public Use
  Company Number: NO-TEVA-797443ACC

PATIENT
  Age: 77 Year
  Sex: Male

DRUGS (2)
  1. RITUXIMAB. [Concomitant]
     Active Substance: RITUXIMAB
     Indication: COLD TYPE HAEMOLYTIC ANAEMIA
     Dosage: (DAY 1, 4 CYCLES AT 28-DAY INTERVALS)
     Route: 065
  2. BENDAMUSTINE HYDROCHLORIDE. [Suspect]
     Active Substance: BENDAMUSTINE HYDROCHLORIDE
     Indication: COLD TYPE HAEMOLYTIC ANAEMIA
     Dosage: (DAYS 1 AND 2 FOR 4 CYCLES AT A 28-DAY INTERVAL)
     Route: 042

REACTIONS (1)
  - Polyneuropathy [Recovered/Resolved]
